FAERS Safety Report 14952002 (Version 1)
Quarter: 2018Q2

REPORT INFORMATION
  Report Type: Spontaneous
  Country: US (occurrence: US)
  Receive Date: 20180530
  Receipt Date: 20180530
  Transmission Date: 20180711
  Serious: Yes (Other)
  Sender: FDA-Public Use
  Company Number: US-SA-2018SA137815

PATIENT
  Age: 46 Year
  Sex: Female
  Weight: 63.95 kg

DRUGS (8)
  1. ELLENCE [Concomitant]
     Active Substance: EPIRUBICIN HYDROCHLORIDE
  2. TAMOXIFEN [Concomitant]
     Active Substance: TAMOXIFEN
  3. TAXOTERE [Suspect]
     Active Substance: DOCETAXEL
     Indication: BREAST CANCER
     Dosage: 166 MG, QOW
     Dates: start: 20160721, end: 20160721
  4. TAXOTERE [Suspect]
     Active Substance: DOCETAXEL
     Dosage: 166 MG, QOW
     Dates: start: 20161117, end: 20161117
  5. LETROZOLE. [Concomitant]
     Active Substance: LETROZOLE
  6. 5-FLUOROURACIL [FLUOROURACIL SODIUM] [Concomitant]
  7. TAXOTERE [Suspect]
     Active Substance: DOCETAXEL
     Dosage: UNK
  8. NEOSAR [Concomitant]
     Active Substance: CYCLOPHOSPHAMIDE

REACTIONS (1)
  - Alopecia [Recovering/Resolving]

NARRATIVE: CASE EVENT DATE: 201705
